FAERS Safety Report 7152546-3 (Version None)
Quarter: 2010Q4

REPORT INFORMATION
  Report Type: 
  Country: None (occurrence: None)
  Receive Date: 20101213
  Receipt Date: 20101201
  Transmission Date: 20110411
  Serious: Yes (Hospitalization)
  Sender: FDA-Public Use
  Company Number: BE-CELGENEUS-013-C5013-10110809

PATIENT
  Sex: Female

DRUGS (26)
  1. THALIDOMIDE [Suspect]
     Indication: MULTIPLE MYELOMA
     Route: 048
     Dates: start: 20100817
  2. THALIDOMIDE [Suspect]
     Route: 048
     Dates: start: 20101001, end: 20101024
  3. MELPHALAN HYDROCHLORIDE [Suspect]
     Indication: MULTIPLE MYELOMA
     Route: 065
     Dates: start: 20100817
  4. MELPHALAN HYDROCHLORIDE [Suspect]
     Route: 065
     Dates: start: 20101001, end: 20101004
  5. PREDNISONE [Suspect]
     Indication: MULTIPLE MYELOMA
     Route: 065
     Dates: start: 20100817
  6. PREDNISONE [Suspect]
     Route: 065
     Dates: start: 20101001, end: 20101004
  7. PREDNISONE [Suspect]
     Route: 065
     Dates: start: 20101122
  8. XYLOCAINE [Suspect]
     Route: 030
     Dates: start: 20100608, end: 20100608
  9. LEVOTHYROXINE SODIUM [Concomitant]
     Indication: HYPOTHYROIDISM
     Route: 065
  10. LIPITOR [Concomitant]
     Route: 065
  11. STEOVIT D3 [Concomitant]
     Route: 065
  12. DAFALGAN [Concomitant]
     Route: 065
     Dates: start: 20100401, end: 20101001
  13. CONTRAMAL [Concomitant]
     Indication: BONE DISORDER
     Route: 065
     Dates: start: 20100401, end: 20101001
  14. PANTOZOL [Concomitant]
     Route: 065
     Dates: start: 20100806, end: 20101101
  15. ASOFLON [Concomitant]
     Route: 065
     Dates: start: 19980715
  16. MOTILIUM [Concomitant]
     Indication: NAUSEA
     Route: 065
     Dates: start: 20100928
  17. DYTENZIDE [Concomitant]
     Indication: HYPERTENSION
     Route: 065
     Dates: start: 20100101
  18. CLEXANE [Concomitant]
     Route: 058
     Dates: start: 20100817
  19. EPREX [Concomitant]
     Dosage: 40000 UNITS
     Route: 058
     Dates: start: 20100609
  20. NEUPOGEN [Concomitant]
     Indication: NEUTROPENIA
     Dosage: 480-300MCG
     Route: 058
     Dates: start: 20101014, end: 20101114
  21. NEULASTA [Concomitant]
     Indication: NEUTROPENIA
     Route: 058
     Dates: start: 20101115
  22. PANTOMED [Concomitant]
     Indication: GASTRITIS
     Route: 065
     Dates: start: 20100211
  23. ZOMETA [Concomitant]
     Route: 065
     Dates: start: 20100508
  24. PRIMPERAN TAB [Concomitant]
     Indication: NAUSEA
     Route: 065
     Dates: start: 20101028, end: 20101029
  25. LITICAN [Concomitant]
     Indication: NAUSEA
     Route: 065
     Dates: start: 20101028, end: 20101028
  26. DESFERAL [Concomitant]
     Indication: IRON OVERLOAD
     Route: 051
     Dates: start: 20101029

REACTIONS (1)
  - GENERAL PHYSICAL HEALTH DETERIORATION [None]
